FAERS Safety Report 4626681-5 (Version None)
Quarter: 2005Q2

REPORT INFORMATION
  Report Type: 
  Country: None (occurrence: None)
  Receive Date: 20050405
  Receipt Date: 20050324
  Transmission Date: 20051028
  Serious: Yes (Hospitalization)
  Sender: FDA-Public Use
  Company Number: US-JNJFOC-20050306227

PATIENT
  Sex: Female

DRUGS (20)
  1. INFLIXIMAB [Suspect]
     Indication: RHEUMATOID ARTHRITIS
     Route: 042
  2. LEXAPRO [Concomitant]
  3. ELAVIL [Concomitant]
  4. FOLIC ACID [Concomitant]
  5. K-DUR 10 [Concomitant]
  6. LASIX [Concomitant]
  7. METHOTREXATE [Concomitant]
  8. NEURONTIN [Concomitant]
  9. OXYCONTIN [Concomitant]
  10. PREMPRO [Concomitant]
  11. PREMPRO [Concomitant]
  12. PREVACID [Concomitant]
  13. RESTORIL [Concomitant]
  14. TIMOLOL MALEATE [Concomitant]
     Route: 047
  15. TYLENOL [Concomitant]
  16. VICODIN [Concomitant]
  17. VICODIN [Concomitant]
     Dosage: 10/600 MG 6 TABS DAILY
  18. XALATAN [Concomitant]
  19. ZOROXOLYN [Concomitant]
  20. LIPITOR [Concomitant]

REACTIONS (2)
  - CHRONIC OBSTRUCTIVE PULMONARY DISEASE [None]
  - PNEUMONIA [None]
